FAERS Safety Report 6234972-X (Version None)
Quarter: 2009Q2

REPORT INFORMATION
  Report Type: 
  Country: None (occurrence: None)
  Receive Date: 20090616
  Receipt Date: 20090608
  Transmission Date: 20091009
  Serious: Yes (Life-Threatening)
  Sender: FDA-Public Use
  Company Number: ADR3532009

PATIENT
  Age: 76 Year
  Sex: Male

DRUGS (7)
  1. METFORMIN HCL [Suspect]
     Indication: TYPE 2 DIABETES MELLITUS
     Dosage: 1000 MG, ORAL
     Route: 048
     Dates: start: 20071201, end: 20081126
  2. ASPIRIN [Concomitant]
  3. DELIX [Concomitant]
  4. LOCOL [Concomitant]
  5. AMARYL [Concomitant]
  6. 95 [Concomitant]
  7. BEROTHYROX [Concomitant]

REACTIONS (3)
  - HYPOGLYCAEMIA [None]
  - RENAL FAILURE ACUTE [None]
  - RHABDOMYOLYSIS [None]
